FAERS Safety Report 5622130-9 (Version None)
Quarter: 2008Q1

REPORT INFORMATION
  Report Type: 
  Country: None (occurrence: None)
  Receive Date: 20080211
  Receipt Date: 20080201
  Transmission Date: 20080703
  Serious: Yes (Death, Hospitalization)
  Sender: FDA-Public Use
  Company Number: JP-ABBOTT-08P-087-0434557-00

PATIENT
  Age: 84 Year
  Sex: Male

DRUGS (1)
  1. FENOFIBRATE [Suspect]
     Indication: HYPERLIPIDAEMIA
     Route: 048

REACTIONS (5)
  - AORTIC ANEURYSM [None]
  - DIARRHOEA [None]
  - HAEMOPTYSIS [None]
  - PYREXIA [None]
  - RHABDOMYOLYSIS [None]
